FAERS Safety Report 9260832 (Version 1)
Quarter: 2013Q2

REPORT INFORMATION
  Report Type: Spontaneous
  Country: US (occurrence: US)
  Receive Date: 20130429
  Receipt Date: 20130429
  Transmission Date: 20140414
  Serious: No
  Sender: FDA-Public Use
  Company Number: US-AMGEN-USASP2013003982

PATIENT
  Age: 53 Year
  Sex: Male

DRUGS (6)
  1. VECTIBIX [Suspect]
     Indication: METASTASES TO LIVER
     Dosage: 700 MG, Q2WK EVERY TWO WEEKS
     Route: 042
     Dates: start: 20121126
  2. VECTIBIX [Suspect]
     Indication: METASTASES TO LUNG
  3. TYLENOL                            /00020001/ [Concomitant]
     Dosage: 1000 MG, UNK
  4. BENADRYL                           /00000402/ [Concomitant]
     Dosage: 25 MG, UNK
  5. OXALIPLATIN [Concomitant]
     Dosage: UNK
     Dates: start: 201204
  6. XELODA [Concomitant]
     Dosage: UNK

REACTIONS (4)
  - Dermatitis acneiform [Not Recovered/Not Resolved]
  - Rash erythematous [Not Recovered/Not Resolved]
  - Dry skin [Not Recovered/Not Resolved]
  - Rash [Not Recovered/Not Resolved]
